FAERS Safety Report 24139429 (Version 1)
Quarter: 2024Q3

REPORT INFORMATION
  Report Type: Spontaneous
  Country: FR (occurrence: FR)
  Receive Date: 20240726
  Receipt Date: 20240726
  Transmission Date: 20241016
  Serious: Yes (Hospitalization, Other)
  Sender: CHEPLAPHARM
  Company Number: None

PATIENT
  Age: 14 Month
  Sex: Male
  Weight: 11 kg

DRUGS (2)
  1. CLONAZEPAM [Suspect]
     Active Substance: CLONAZEPAM
     Indication: Epilepsy
     Route: 042
     Dates: start: 20240418, end: 20240418
  2. MIDAZOLAM HYDROCHLORIDE [Suspect]
     Active Substance: MIDAZOLAM HYDROCHLORIDE
     Indication: Epilepsy
     Route: 002
     Dates: start: 20240418, end: 20240418

REACTIONS (6)
  - Laryngospasm [Recovered/Resolved]
  - Laryngeal dyspnoea [Recovered/Resolved]
  - Pneumonia aspiration [Unknown]
  - Moraxella infection [Unknown]
  - Rhinovirus infection [Unknown]
  - Enterovirus infection [Unknown]

NARRATIVE: CASE EVENT DATE: 20240418
